FAERS Safety Report 11147160 (Version 5)
Quarter: 2015Q3

REPORT INFORMATION
  Report Type: Spontaneous
  Country: DE (occurrence: DE)
  Receive Date: 20150528
  Receipt Date: 20150720
  Transmission Date: 20151125
  Serious: Yes (Other)
  Sender: FDA-Public Use
  Company Number: DE-GLAXOSMITHKLINE-DE2015GSK052645

PATIENT
  Age: 3 Year
  Sex: Male
  Weight: 14 kg

DRUGS (2)
  1. SALBUTAMOL [Concomitant]
     Active Substance: ALBUTEROL
  2. FLUTIDE MITE [Suspect]
     Active Substance: FLUTICASONE PROPIONATE
     Indication: BRONCHIAL HYPERREACTIVITY
     Dosage: 2 PUFF(S), BID
     Dates: start: 201412

REACTIONS (6)
  - Pneumonia [Unknown]
  - Drug ineffective [Unknown]
  - Bronchitis [Recovered/Resolved]
  - Product quality issue [Unknown]
  - Streptococcal infection [Unknown]
  - Drug administration error [Unknown]

NARRATIVE: CASE EVENT DATE: 201411
